FAERS Safety Report 8252334-0 (Version None)
Quarter: 2012Q2

REPORT INFORMATION
  Report Type: 
  Country: None (occurrence: None)
  Receive Date: 20120402
  Receipt Date: 20110511
  Transmission Date: 20120825
  Serious: No
  Sender: FDA-Public Use
  Company Number: US-ABBOTT-11P-163-0804543-00

PATIENT
  Sex: Male
  Weight: 78.636 kg

DRUGS (3)
  1. TESTOSTERONE [Suspect]
     Dosage: DAILY DOSE: 7.5 GRAM(S), PUMP, AS USED: 7.5 GRAMS
     Route: 062
     Dates: start: 20110101
  2. ATORVASTATIN CALCIUM [Concomitant]
     Indication: BLOOD CHOLESTEROL INCREASED
     Dosage: DAILY DOSE:  UNKNOWN
     Route: 065
  3. TESTOSTERONE [Suspect]
     Indication: BLOOD TESTOSTERONE DECREASED
     Dosage: DAILY DOSE: 5 GRAM(S), PUMP
     Route: 062
     Dates: start: 20110201

REACTIONS (5)
  - MUSCULAR WEAKNESS [None]
  - FLUID RETENTION [None]
  - ASTHENIA [None]
  - DRUG ADMINISTERED AT INAPPROPRIATE SITE [None]
  - DRUG INEFFECTIVE [None]
